FAERS Safety Report 25876292 (Version 1)
Quarter: 2025Q4

REPORT INFORMATION
  Report Type: Spontaneous
  Country: BR (occurrence: BR)
  Receive Date: 20251003
  Receipt Date: 20251003
  Transmission Date: 20260117
  Serious: Yes (Death, Other)
  Sender: CELLTRION
  Company Number: BR-CELLTRION INC.-2025BR035391

PATIENT

DRUGS (1)
  1. INFLIXIMAB [Suspect]
     Active Substance: INFLIXIMAB
     Indication: Crohn^s disease
     Dosage: UNK
     Route: 042

REACTIONS (5)
  - Crohn^s disease [Fatal]
  - Psychogenic loss of appetite [Fatal]
  - Nervousness [Fatal]
  - Depression [Fatal]
  - Treatment noncompliance [Unknown]
